FAERS Safety Report 22670036 (Version 2)
Quarter: 2024Q2

REPORT INFORMATION
  Report Type: Report from Study
  Country: CA (occurrence: CA)
  Receive Date: 20230704
  Receipt Date: 20240408
  Transmission Date: 20240716
  Serious: Yes (Hospitalization, Other)
  Sender: FDA-Public Use
  Company Number: CA-VER-202300299

PATIENT
  Age: 76 Year
  Sex: Male

DRUGS (5)
  1. TRIPTORELIN PAMOATE [Suspect]
     Active Substance: TRIPTORELIN PAMOATE
     Indication: Prostate cancer
     Dosage: POWDER FOR PROLONGED-RELEASE SUSPENSION FOR INJECTION
     Route: 030
     Dates: start: 20230323, end: 20230323
  2. TRIPTORELIN PAMOATE [Suspect]
     Active Substance: TRIPTORELIN PAMOATE
     Indication: Prostate cancer
     Dosage: POWDER FOR PROLONGED-RELEASE SUSPENSION FOR INJECTION
     Route: 030
     Dates: start: 20230615, end: 20230615
  3. TRIPTORELIN PAMOATE [Suspect]
     Active Substance: TRIPTORELIN PAMOATE
     Indication: Prostate cancer
     Dosage: POWDER FOR PROLONGED-RELEASE SUSPENSION FOR INJECTION
     Route: 030
     Dates: start: 20230914, end: 20230914
  4. TRIPTORELIN PAMOATE [Suspect]
     Active Substance: TRIPTORELIN PAMOATE
     Indication: Prostate cancer
     Dosage: POWDER FOR PROLONGED-RELEASE SUSPENSION FOR INJECTION
     Route: 030
     Dates: start: 20231214, end: 20231214
  5. TRIPTORELIN PAMOATE [Suspect]
     Active Substance: TRIPTORELIN PAMOATE
     Indication: Prostate cancer
     Dosage: POWDER FOR PROLONGED-RELEASE SUSPENSION FOR INJECTION
     Route: 030
     Dates: start: 20240314, end: 20240314

REACTIONS (3)
  - Cardiac pacemaker insertion [Recovered/Resolved]
  - Pneumonia [Recovering/Resolving]
  - Inappropriate schedule of product administration [Recovered/Resolved]

NARRATIVE: CASE EVENT DATE: 20230531
